FAERS Safety Report 4403910-4 (Version None)
Quarter: 2004Q2

REPORT INFORMATION
  Report Type: 
  Country: None (occurrence: None)
  Receive Date: 20040618
  Receipt Date: 20040412
  Transmission Date: 20050107
  Serious: No
  Sender: FDA-Public Use
  Company Number: US-JNJFOC-20040403016

PATIENT
  Age: 40 Year
  Sex: Female
  Weight: 61.2356 kg

DRUGS (2)
  1. ORTHO EVRA [Suspect]
     Indication: CONTRACEPTION
     Dosage: 1 DOSE(S), 3 IN  4 WEEK, TRANSDERMAL
     Route: 062
     Dates: start: 20030101
  2. ORTHO EVRA [Suspect]
     Indication: ENDOMETRIOSIS
     Dosage: 1 DOSE(S), 3 IN  4 WEEK, TRANSDERMAL
     Route: 062
     Dates: start: 20030101

REACTIONS (1)
  - SUNBURN [None]
